FAERS Safety Report 14322020 (Version 3)
Quarter: 2018Q1

REPORT INFORMATION
  Report Type: Report from Study
  Country: US (occurrence: US)
  Receive Date: 20171225
  Receipt Date: 20180208
  Transmission Date: 20180509
  Serious: Yes (Hospitalization, Other)
  Sender: FDA-Public Use
  Company Number: US-ROCHE-2043909

PATIENT
  Age: 31 Year
  Sex: Female
  Weight: 81.72 kg

DRUGS (2)
  1. OCREVUS [Suspect]
     Active Substance: OCRELIZUMAB
     Indication: MULTIPLE SCLEROSIS RELAPSE
     Dosage: ONGOING: YES
     Route: 042
     Dates: start: 20171020
  2. OCREVUS [Suspect]
     Active Substance: OCRELIZUMAB
     Dosage: ONGOING: UNKNOWN
     Route: 042
     Dates: start: 20171214

REACTIONS (4)
  - Dyspnoea [Not Recovered/Not Resolved]
  - Throat tightness [Not Recovered/Not Resolved]
  - Swollen tongue [Not Recovered/Not Resolved]
  - Chest discomfort [Not Recovered/Not Resolved]

NARRATIVE: CASE EVENT DATE: 20171020
